FAERS Safety Report 22164937 (Version 1)
Quarter: 2023Q2

REPORT INFORMATION
  Report Type: Report from Study
  Country: US (occurrence: US)
  Receive Date: 20230403
  Receipt Date: 20230403
  Transmission Date: 20230722
  Serious: Yes (Other)
  Sender: FDA-Public Use
  Company Number: US-BIOVITRUM-2023-US-007585

PATIENT
  Age: 17 Year
  Sex: Female

DRUGS (1)
  1. KINERET [Suspect]
     Active Substance: ANAKINRA
     Indication: Deafness
     Dosage: DAILY
     Route: 058
     Dates: start: 20230314

REACTIONS (6)
  - Loss of consciousness [Unknown]
  - Burning sensation [Unknown]
  - Intentional product misuse [Unknown]
  - Injection site erythema [Unknown]
  - Injection site swelling [Unknown]
  - Injection site pruritus [Unknown]
